FAERS Safety Report 13903482 (Version 1)
Quarter: 2017Q3

REPORT INFORMATION
  Report Type: Report from Study
  Country: US (occurrence: US)
  Receive Date: 20170824
  Receipt Date: 20170824
  Transmission Date: 20171127
  Serious: Yes (Other)
  Sender: FDA-Public Use
  Company Number: US-BRISTOL-MYERS SQUIBB COMPANY-BMS-2017-074489

PATIENT
  Sex: Female

DRUGS (1)
  1. NIVOLUMAB [Suspect]
     Active Substance: NIVOLUMAB
     Indication: STEM CELL TRANSPLANT
     Dosage: 0.5 MG/KG, (3 CYCLES)
     Route: 065

REACTIONS (3)
  - Condition aggravated [Unknown]
  - Graft versus host disease [Unknown]
  - Prescribed underdose [Unknown]
